FAERS Safety Report 24588705 (Version 1)
Quarter: 2024Q4

REPORT INFORMATION
  Report Type: Spontaneous
  Country: CA (occurrence: CA)
  Receive Date: 20241107
  Receipt Date: 20241107
  Transmission Date: 20250115
  Serious: Yes (Hospitalization)
  Sender: STASON PHARMACEUTICALS, INC.
  Company Number: CA-Stason Pharmaceuticals, Inc.-2164614

PATIENT
  Age: 60 Year
  Sex: Male
  Weight: 65 kg

DRUGS (1)
  1. MERCAPTOPURINE [Suspect]
     Active Substance: MERCAPTOPURINE
     Indication: B-cell type acute leukaemia

REACTIONS (1)
  - Febrile neutropenia [Recovered/Resolved]
